FAERS Safety Report 8807958 (Version 2)
Quarter: 2015Q1

REPORT INFORMATION
  Report Type: Report from Study
  Country: US (occurrence: US)
  Receive Date: 20120925
  Receipt Date: 20150305
  Transmission Date: 20150721
  Serious: Yes (Death, Hospitalization, Other)
  Sender: FDA-Public Use
  Company Number: US-ROCHE-1104063

PATIENT
  Sex: Male

DRUGS (12)
  1. TEMODAR [Concomitant]
     Active Substance: TEMOZOLOMIDE
     Route: 048
  2. REMERON [Concomitant]
     Active Substance: MIRTAZAPINE
  3. LAMICTAL [Concomitant]
     Active Substance: LAMOTRIGINE
     Route: 065
  4. DEXAMETHASONE SODIUM PHOSPHATE. [Concomitant]
     Active Substance: DEXAMETHASONE SODIUM PHOSPHATE
     Route: 042
  5. AVASTIN [Suspect]
     Active Substance: BEVACIZUMAB
     Indication: BRAIN NEOPLASM MALIGNANT
     Route: 042
     Dates: start: 20081219
  6. DECADRON [Suspect]
     Active Substance: DEXAMETHASONE
     Indication: PRODUCT USED FOR UNKNOWN INDICATION
     Route: 065
  7. CITALOPRAM [Suspect]
     Active Substance: CITALOPRAM HYDROBROMIDE
     Indication: PRODUCT USED FOR UNKNOWN INDICATION
     Dosage: BEDTIME
     Route: 065
  8. ATROPINE SULPHATE [Concomitant]
     Route: 042
  9. GRANISETRON [Concomitant]
     Active Substance: GRANISETRON
     Route: 042
  10. ATIVAN [Concomitant]
     Active Substance: LORAZEPAM
     Dosage: AT BEDTIME
     Route: 065
  11. CLINDAMYCIN [Concomitant]
     Active Substance: CLINDAMYCIN\CLINDAMYCIN PHOSPHATE
     Dosage: GEL
     Route: 065
  12. IRINOTECAN HYDROCHLORIDE. [Concomitant]
     Active Substance: IRINOTECAN HYDROCHLORIDE
     Route: 042

REACTIONS (14)
  - Headache [Unknown]
  - Off label use [Unknown]
  - Nausea [Unknown]
  - Oedema [Unknown]
  - Dermatitis acneiform [Unknown]
  - Death [Fatal]
  - Vomiting [Unknown]
  - Restless legs syndrome [Recovered/Resolved]
  - Asthenia [Unknown]
  - Anaplastic astrocytoma [Unknown]
  - Rash [Unknown]
  - Fatigue [Unknown]
  - Disease progression [Unknown]
  - Seizure [Unknown]
